FAERS Safety Report 9280351 (Version 1)
Quarter: 2013Q2

REPORT INFORMATION
  Report Type: Spontaneous
  Country: US (occurrence: None)
  Receive Date: 20130507
  Receipt Date: 20130507
  Transmission Date: 20140414
  Serious: Yes (Other)
  Sender: FDA-Public Use
  Company Number: None

PATIENT
  Age: 84 Year
  Sex: Female

DRUGS (1)
  1. EYLEA 2 MG REGENERON [Suspect]
     Indication: AGE-RELATED MACULAR DEGENERATION
     Dosage: 1 DOSE 7-8 WEEKS, INTRAOCULAR
     Dates: start: 20120518, end: 20130503

REACTIONS (1)
  - Endophthalmitis [None]
